FAERS Safety Report 10765588 (Version 1)
Quarter: 2015Q1

REPORT INFORMATION
  Report Type: Spontaneous
  Country: US (occurrence: None)
  Receive Date: 20150204
  Receipt Date: 20150204
  Transmission Date: 20150721
  Serious: Yes (Other)
  Sender: FDA-Public Use
  Company Number: None

PATIENT
  Age: 9 Year
  Sex: Male
  Weight: 27.9 kg

DRUGS (5)
  1. ALBUTEROL AND DIPHENHYDRAMINE PRN [Concomitant]
  2. ARIPIPRAZOLE. [Suspect]
     Active Substance: ARIPIPRAZOLE
  3. ADDERALL SR 10 MG 8A AND 2P [Concomitant]
  4. FLUOXETINE 10 MG 1XD [Concomitant]
  5. LORATADINE 10 MG 1XD [Concomitant]

REACTIONS (3)
  - Extrapyramidal disorder [None]
  - Tremor [None]
  - Cogwheel rigidity [None]

NARRATIVE: CASE EVENT DATE: 20141016
